FAERS Safety Report 4926850-0 (Version None)
Quarter: 2006Q1

REPORT INFORMATION
  Report Type: 
  Country: None (occurrence: None)
  Receive Date: 20060228
  Receipt Date: 20050705
  Transmission Date: 20060701
  Serious: No
  Sender: FDA-Public Use
  Company Number: US-GLAXOSMITHKLINE-A0564935A

PATIENT
  Age: 55 Year
  Sex: Female
  Weight: 74.7 kg

DRUGS (7)
  1. LAMICTAL [Suspect]
     Dosage: 75MG PER DAY
     Route: 048
     Dates: start: 20050527, end: 20050603
  2. LEVOFLOXACIN [Suspect]
     Dosage: 500MG PER DAY
     Route: 048
     Dates: start: 20050531, end: 20050603
  3. CLOZAPINE [Concomitant]
     Dosage: 750MG PER DAY
  4. LEVOTHYROXINE SODIUM [Concomitant]
  5. CALCIUM GLUCONATE [Concomitant]
     Dosage: 1G PER DAY
  6. VITAMIN D [Concomitant]
  7. LACTULOSE [Concomitant]
     Dosage: 60ML PER DAY

REACTIONS (1)
  - RASH [None]
